FAERS Safety Report 9051994 (Version 4)
Quarter: 2013Q1

REPORT INFORMATION
  Report Type: Spontaneous
  Country: US (occurrence: US)
  Receive Date: 20130207
  Receipt Date: 20130313
  Transmission Date: 20140127
  Serious: Yes (Hospitalization, Other)
  Sender: FDA-Public Use
  Company Number: US-JNJFOC-20130112580

PATIENT
  Age: 83 None
  Sex: Female
  Weight: 87.09 kg

DRUGS (5)
  1. XARELTO [Suspect]
     Indication: CEREBROVASCULAR ACCIDENT PROPHYLAXIS
     Route: 048
     Dates: start: 20121130, end: 20130119
  2. XARELTO [Suspect]
     Indication: CEREBROVASCULAR ACCIDENT PROPHYLAXIS
     Route: 048
  3. XARELTO [Suspect]
     Indication: ATRIAL FIBRILLATION
     Route: 048
  4. XARELTO [Suspect]
     Indication: ATRIAL FIBRILLATION
     Route: 048
     Dates: start: 20121130, end: 20130119
  5. ASPIRIN [Suspect]
     Indication: ANTIPLATELET THERAPY
     Route: 065

REACTIONS (3)
  - Haemorrhage [Unknown]
  - Fall [Unknown]
  - Haemorrhage intracranial [Recovering/Resolving]
